FAERS Safety Report 15351731 (Version 5)
Quarter: 2021Q4

REPORT INFORMATION
  Report Type: Report from Study
  Country: JP (occurrence: JP)
  Receive Date: 20180905
  Receipt Date: 20211007
  Transmission Date: 20220303
  Serious: Yes (Death)
  Sender: FDA-Public Use
  Company Number: JP-BAUSCH-BL-2018-024650

PATIENT
  Age: 59 Year
  Sex: Male
  Weight: 76 kg

DRUGS (4)
  1. TETRABENAZINE [Suspect]
     Active Substance: TETRABENAZINE
     Indication: Huntington^s disease
     Route: 048
     Dates: start: 20150410, end: 20161027
  2. TETRABENAZINE [Suspect]
     Active Substance: TETRABENAZINE
     Route: 048
     Dates: start: 20161028
  3. HALOPERIDOL [Concomitant]
     Active Substance: HALOPERIDOL
     Indication: Product used for unknown indication
     Route: 048
     Dates: start: 20150313, end: 20150409
  4. ALESION [Concomitant]
     Active Substance: EPINASTINE HYDROCHLORIDE
     Indication: Seasonal allergy
     Route: 048
     Dates: start: 20150612

REACTIONS (1)
  - Completed suicide [Fatal]

NARRATIVE: CASE EVENT DATE: 20180324
